FAERS Safety Report 4787037-8 (Version None)
Quarter: 2005Q3

REPORT INFORMATION
  Report Type: 
  Country: None (occurrence: None)
  Receive Date: 20050930
  Receipt Date: 20050921
  Transmission Date: 20060218
  Serious: Yes (Hospitalization)
  Sender: FDA-Public Use
  Company Number: 2005RL000122

PATIENT
  Age: 63 Year
  Sex: Female
  Weight: 68.0396 kg

DRUGS (4)
  1. ANTARA [Suspect]
     Indication: BLOOD CHOLESTEROL INCREASED
     Dosage: 130 MG; QD; PO
     Route: 048
     Dates: start: 20050512, end: 20050901
  2. ATIVAN [Concomitant]
  3. NEXIUM [Concomitant]
  4. COZAAR [Concomitant]

REACTIONS (8)
  - ACUTE PRERENAL FAILURE [None]
  - BLOOD SODIUM DECREASED [None]
  - DEHYDRATION [None]
  - FATIGUE [None]
  - FEELING ABNORMAL [None]
  - HEPATIC ENZYME INCREASED [None]
  - INFLUENZA LIKE ILLNESS [None]
  - RENAL FAILURE [None]
